FAERS Safety Report 8136680-7 (Version None)
Quarter: 2012Q1

REPORT INFORMATION
  Report Type: 
  Country: None (occurrence: None)
  Receive Date: 20120214
  Receipt Date: 20120211
  Transmission Date: 20120608
  Serious: No
  Sender: FDA-Public Use
  Company Number: US-BAYER-2012-014266

PATIENT
  Sex: Female

DRUGS (1)
  1. ALEVE (CAPLET) [Suspect]

REACTIONS (4)
  - POLYMENORRHOEA [None]
  - DYSMENORRHOEA [None]
  - DISCOMFORT [None]
  - ABDOMINAL PAIN [None]
